FAERS Safety Report 14900581 (Version 3)
Quarter: 2018Q3

REPORT INFORMATION
  Report Type: Spontaneous
  Country: US (occurrence: US)
  Receive Date: 20180516
  Receipt Date: 20180727
  Transmission Date: 20181010
  Serious: No
  Sender: FDA-Public Use
  Company Number: US-PFIZER INC-2018196938

PATIENT
  Age: 47 Year
  Sex: Male

DRUGS (1)
  1. EUCRISA [Suspect]
     Active Substance: CRISABOROLE
     Indication: ECZEMA
     Dosage: 1 G, 2X/DAY (APPLY 1 GM BID X 3 MO. 60 GM)(APPLY BID FOR RASH ON ARM )
     Route: 061
     Dates: start: 20180112, end: 20180521

REACTIONS (2)
  - Application site pain [Unknown]
  - Application site pruritus [Unknown]

NARRATIVE: CASE EVENT DATE: 2018
